FAERS Safety Report 20845292 (Version 5)
Quarter: 2024Q4

REPORT INFORMATION
  Report Type: Report from Study
  Country: DE (occurrence: DE)
  Receive Date: 20220518
  Receipt Date: 20241206
  Transmission Date: 20250115
  Serious: No
  Sender: ROCHE
  Company Number: DE-ROCHE-3096012

PATIENT
  Age: 36 Year
  Sex: Female
  Weight: 86.0 kg

DRUGS (5)
  1. OCRELIZUMAB [Suspect]
     Active Substance: OCRELIZUMAB
     Indication: Relapsing multiple sclerosis
     Route: 042
     Dates: start: 20210302, end: 20210316
  2. OCRELIZUMAB [Suspect]
     Active Substance: OCRELIZUMAB
     Route: 042
     Dates: start: 20210907
  3. DESOGESTREL [Concomitant]
     Active Substance: DESOGESTREL
     Indication: Contraception
     Route: 048
     Dates: start: 2020
  4. IBUPROFEN [Concomitant]
     Active Substance: IBUPROFEN
     Indication: Migraine
     Route: 048
     Dates: start: 2000
  5. LEVOTHYROXINE SODIUM [Concomitant]
     Active Substance: LEVOTHYROXINE SODIUM
     Indication: Hypothyroidism
     Route: 048
     Dates: start: 2017

REACTIONS (5)
  - COVID-19 [Recovered/Resolved]
  - Cough [Recovered/Resolved]
  - Dizziness [Recovered/Resolved]
  - COVID-19 [Recovered/Resolved]
  - COVID-19 [Recovered/Resolved]

NARRATIVE: CASE EVENT DATE: 20210907
